FAERS Safety Report 5557406-7 (Version None)
Quarter: 2007Q4

REPORT INFORMATION
  Report Type: 
  Country: None (occurrence: None)
  Receive Date: 20071214
  Receipt Date: 20071203
  Transmission Date: 20080405
  Serious: Yes (Hospitalization)
  Sender: FDA-Public Use
  Company Number: FR-SANOFI-SYNTHELABO-A02200703276

PATIENT
  Sex: Female

DRUGS (6)
  1. PAROXETINE HCL [Concomitant]
     Indication: DRUG USE FOR UNKNOWN INDICATION
     Route: 048
  2. DIAMICRON [Concomitant]
     Indication: TYPE 2 DIABETES MELLITUS
     Route: 048
  3. APROVEL [Concomitant]
     Indication: HYPERTENSION
     Route: 048
  4. KARDEGIC [Concomitant]
     Indication: PROPHYLAXIS
     Route: 048
  5. STILNOX [Suspect]
     Indication: DRUG USE FOR UNKNOWN INDICATION
     Dosage: UNK
     Route: 048
     Dates: start: 20071002, end: 20071004
  6. EURELIX [Concomitant]
     Route: 048

REACTIONS (7)
  - BLOOD PRESSURE ABNORMAL [None]
  - HYPOCHLORAEMIA [None]
  - HYPONATRAEMIA [None]
  - RESPIRATORY ACIDOSIS [None]
  - SLEEP ATTACKS [None]
  - SOMNOLENCE [None]
  - SPEECH DISORDER [None]
